FAERS Safety Report 9728104 (Version 1)
Quarter: 2013Q4

REPORT INFORMATION
  Report Type: Spontaneous
  Country: SG (occurrence: SG)
  Receive Date: 20131204
  Receipt Date: 20131204
  Transmission Date: 20140711
  Serious: Yes (Other)
  Sender: FDA-Public Use
  Company Number: PHHY2013SG140676

PATIENT
  Sex: Male

DRUGS (1)
  1. GLIVEC [Suspect]

REACTIONS (2)
  - Optic atrophy [Unknown]
  - Visual impairment [Unknown]
